FAERS Safety Report 7133373-X (Version None)
Quarter: 2010Q4

REPORT INFORMATION
  Report Type: 
  Country: None (occurrence: None)
  Receive Date: 20101202
  Receipt Date: 20101113
  Transmission Date: 20110411
  Serious: No
  Sender: FDA-Public Use
  Company Number: US-B.I. PHARMACEUTICALS,INC./RIDGEFIELD-2010-BP-12835BP

PATIENT
  Sex: Male

DRUGS (13)
  1. MIRAPEX [Suspect]
     Indication: ANXIETY
     Dosage: 0.375 MG
     Route: 048
     Dates: start: 20100901, end: 20101001
  2. MIRAPEX [Suspect]
     Dosage: 0.375 MG
     Route: 048
     Dates: start: 20101001
  3. ACETYLCYSTEINE [Concomitant]
     Indication: VITAMIN SUPPLEMENTATION
     Route: 048
     Dates: start: 20000101
  4. COQ10 [Concomitant]
     Indication: VITAMIN SUPPLEMENTATION
     Dosage: 100 MG
     Route: 048
     Dates: start: 20100501
  5. FISH OIL [Concomitant]
     Indication: VITAMIN SUPPLEMENTATION
     Dosage: 1000 MG
     Route: 048
     Dates: start: 20100501
  6. VITAMIN D [Concomitant]
     Indication: VITAMIN SUPPLEMENTATION
     Dosage: 2000 U
     Route: 048
     Dates: start: 20000101
  7. ONE A DAY MULTIVITAMIN [Concomitant]
     Indication: VITAMIN SUPPLEMENTATION
     Route: 048
     Dates: start: 20000101
  8. UNKNOWN ALLERGY INJECTION [Concomitant]
     Indication: MULTIPLE ALLERGIES
     Dates: start: 19700101
  9. ASTELIN NS [Concomitant]
     Indication: MULTIPLE ALLERGIES
     Dosage: 274 MCG
     Route: 055
     Dates: start: 20050101
  10. LEXAPRO [Concomitant]
     Indication: ANXIETY
     Dosage: 20 MG
     Route: 048
     Dates: start: 20090101
  11. ZOCOR [Concomitant]
     Indication: BLOOD CHOLESTEROL INCREASED
     Dosage: 40 MG
     Route: 048
     Dates: start: 20090801
  12. MIDODRINE HYDROCHLORIDE [Concomitant]
     Indication: ANXIETY
     Dosage: 75 MG
     Route: 048
     Dates: start: 20100801
  13. SINGULAIR [Concomitant]
     Indication: ASTHMA
     Dosage: 10 MG
     Route: 048
     Dates: start: 20000101

REACTIONS (1)
  - TENSION [None]
